FAERS Safety Report 25206812 (Version 1)
Quarter: 2025Q2

REPORT INFORMATION
  Report Type: Report from Study
  Country: GB (occurrence: None)
  Receive Date: 20250417
  Receipt Date: 20250417
  Transmission Date: 20250717
  Serious: Yes (Other)
  Sender: MDD OPERATIONS
  Company Number: GB-MDD US Operations-MDD202504-001251

PATIENT
  Age: 55 Year
  Sex: Female

DRUGS (8)
  1. APOMORPHINE HYDROCHLORIDE [Suspect]
     Active Substance: APOMORPHINE HYDROCHLORIDE
     Indication: Parkinson^s disease
     Route: 058
     Dates: start: 20220401
  2. APOMORPHINE HYDROCHLORIDE [Suspect]
     Active Substance: APOMORPHINE HYDROCHLORIDE
     Route: 058
     Dates: start: 20250325
  3. SINEMET [Concomitant]
     Active Substance: CARBIDOPA\LEVODOPA
     Indication: Parkinson^s disease
  4. ENTACAPONE [Concomitant]
     Active Substance: ENTACAPONE
     Indication: Parkinson^s disease
  5. RASAGILINE [Concomitant]
     Active Substance: RASAGILINE
     Indication: Parkinson^s disease
  6. MIRTAZAPINE [Concomitant]
     Active Substance: MIRTAZAPINE
     Indication: Parkinson^s disease
  7. CLONAZEPAM [Concomitant]
     Active Substance: CLONAZEPAM
     Indication: Parkinson^s disease
  8. Half Sinemet [Concomitant]
     Indication: Parkinson^s disease

REACTIONS (1)
  - Blood pressure increased [Unknown]

NARRATIVE: CASE EVENT DATE: 20250326
